FAERS Safety Report 8909013 (Version 1)
Quarter: 2012Q4

REPORT INFORMATION
  Report Type: 
  Country: US (occurrence: US)
  Receive Date: 20121114
  Receipt Date: 20121114
  Transmission Date: 20130627
  Serious: No
  Sender: FDA-Public Use
  Company Number: US-MYLANLABS-2012S1016579

PATIENT
  Age: 60 Year
  Sex: Female

DRUGS (3)
  1. NADOLOL [Suspect]
     Indication: PORTAL HYPERTENSION
     Route: 048
     Dates: start: 201207
  2. NADOLOL [Suspect]
     Indication: PORTAL HYPERTENSION
     Route: 048
     Dates: start: 201203, end: 201207
  3. HYDROCHLOROTHIAZIDE [Concomitant]
     Indication: HYPERTENSION
     Route: 048

REACTIONS (1)
  - Rash pruritic [Not Recovered/Not Resolved]
